FAERS Safety Report 25600264 (Version 2)
Quarter: 2025Q4

REPORT INFORMATION
  Report Type: Spontaneous
  Country: US (occurrence: US)
  Receive Date: 20250724
  Receipt Date: 20251028
  Transmission Date: 20260118
  Serious: Yes (Hospitalization, Other)
  Sender: AZURITY PHARMACEUTICALS
  Company Number: US-AZURITY PHARMACEUTICALS, INC.-AZR202507-002080

PATIENT
  Age: 57 Year
  Sex: Male

DRUGS (2)
  1. METHYLPREDNISOLONE ACETATE [Suspect]
     Active Substance: METHYLPREDNISOLONE ACETATE
     Indication: Tubulointerstitial nephritis
     Dosage: UNK
     Route: 065
  2. RITUXIMAB [Suspect]
     Active Substance: RITUXIMAB
     Indication: Tubulointerstitial nephritis
     Dosage: UNK
     Route: 065

REACTIONS (6)
  - Bronchopleural fistula [Unknown]
  - Pneumothorax [Recovering/Resolving]
  - Renal impairment [Unknown]
  - Pneumonia legionella [Recovered/Resolved]
  - Hyponatraemia [Unknown]
  - Product use in unapproved indication [Unknown]
